FAERS Safety Report 12907000 (Version 1)
Quarter: 2016Q4

REPORT INFORMATION
  Report Type: Spontaneous
  Country: US (occurrence: US)
  Receive Date: 20161101
  Receipt Date: 20161101
  Transmission Date: 20170207
  Serious: No
  Sender: FDA-Public Use
  Company Number: None

PATIENT
  Age: 52 Year
  Sex: Male
  Weight: 78.75 kg

DRUGS (1)
  1. LISINOPRIL 10MG [Suspect]
     Active Substance: LISINOPRIL

REACTIONS (4)
  - Tinnitus [None]
  - Arthralgia [None]
  - Bursitis [None]
  - Psoriasis [None]

NARRATIVE: CASE EVENT DATE: 20161015
